FAERS Safety Report 6975371-2 (Version None)
Quarter: 2010Q3

REPORT INFORMATION
  Report Type: 
  Country: None (occurrence: None)
  Receive Date: 20100910
  Receipt Date: 20090312
  Transmission Date: 20110219
  Serious: No
  Sender: FDA-Public Use
  Company Number: US-WYE-H08582409

PATIENT
  Age: 66 Year
  Sex: Female
  Weight: 72.64 kg

DRUGS (1)
  1. ADVIL PM [Suspect]
     Indication: INSOMNIA
     Dosage: 2 LIQUIGELS 1 TIME
     Route: 048
     Dates: start: 20090311, end: 20090311

REACTIONS (1)
  - DYSPHAGIA [None]
